FAERS Safety Report 24835429 (Version 3)
Quarter: 2025Q1

REPORT INFORMATION
  Report Type: Report from Study
  Country: US (occurrence: US)
  Receive Date: 20250113
  Receipt Date: 20250312
  Transmission Date: 20250409
  Serious: Yes (Other)
  Sender: INSMED
  Company Number: US-INSMED, INC.-2025-00027-US

PATIENT
  Age: 69 Year
  Sex: Female

DRUGS (1)
  1. ARIKAYCE [Suspect]
     Active Substance: AMIKACIN
     Indication: Mycobacterial infection
     Dosage: 590 MILLIGRAM, QD
     Route: 055
     Dates: start: 20241205, end: 20241207

REACTIONS (7)
  - Oxygen therapy [Unknown]
  - Cough [Unknown]
  - Malaise [Unknown]
  - Feeling abnormal [Unknown]
  - Dizziness [Unknown]
  - Chest discomfort [Unknown]
  - Therapy interrupted [Unknown]

NARRATIVE: CASE EVENT DATE: 20241201
